FAERS Safety Report 24984391 (Version 4)
Quarter: 2025Q1

REPORT INFORMATION
  Report Type: Spontaneous
  Country: FI (occurrence: FI)
  Receive Date: 20250219
  Receipt Date: 20250311
  Transmission Date: 20250409
  Serious: Yes (Other)
  Sender: UCB
  Company Number: FI-UCBSA-2025008871

PATIENT
  Age: 5 Year
  Sex: Male

DRUGS (2)
  1. FINTEPLA [Suspect]
     Active Substance: FENFLURAMINE
     Indication: Severe myoclonic epilepsy of infancy
     Dates: start: 202311
  2. FINTEPLA [Suspect]
     Active Substance: FENFLURAMINE
     Dosage: 3.3 MILLILITER, 2X/DAY (BID)
     Route: 048

REACTIONS (8)
  - Epilepsy [Recovered/Resolved]
  - Petit mal epilepsy [Not Recovered/Not Resolved]
  - Partial seizures [Unknown]
  - Seizure [Unknown]
  - Head injury [Unknown]
  - Therapeutic product ineffective [Unknown]
  - Product storage error [Unknown]
  - Incorrect dose administered [Unknown]

NARRATIVE: CASE EVENT DATE: 20240901
